FAERS Safety Report 12805073 (Version 5)
Quarter: 2017Q1

REPORT INFORMATION
  Report Type: Spontaneous
  Country: CA (occurrence: CA)
  Receive Date: 20161004
  Receipt Date: 20170116
  Transmission Date: 20170428
  Serious: Yes (Other)
  Sender: FDA-Public Use
  Company Number: CA-ROCHE-1837500

PATIENT
  Age: 73 Year
  Sex: Female

DRUGS (3)
  1. SENOKOT [Concomitant]
     Active Substance: SENNOSIDES
     Indication: CONSTIPATION
     Route: 065
     Dates: start: 20160314
  2. XENICAL [Suspect]
     Active Substance: ORLISTAT
     Indication: WEIGHT DECREASED
     Dosage: ONE CAPSULE 3 TIMES A DAY
     Route: 065
     Dates: start: 201602, end: 201609
  3. COLACE [Concomitant]
     Active Substance: DOCUSATE SODIUM
     Indication: CONSTIPATION
     Dosage: 120 MG 3 TIMES PER DAY (EACH MEAL)
     Route: 065
     Dates: start: 20160314

REACTIONS (4)
  - Abdominal distension [Not Recovered/Not Resolved]
  - Abdominal pain [Recovered/Resolved]
  - Drug ineffective [Unknown]
  - Dolichocolon [Not Recovered/Not Resolved]

NARRATIVE: CASE EVENT DATE: 201603
